FAERS Safety Report 22629081 (Version 1)
Quarter: 2023Q2

REPORT INFORMATION
  Report Type: Spontaneous
  Country: US (occurrence: US)
  Receive Date: 20230622
  Receipt Date: 20230622
  Transmission Date: 20230722
  Serious: No
  Sender: FDA-Public Use
  Company Number: US-SEATTLE GENETICS-2023SGN04817

PATIENT
  Sex: Female

DRUGS (1)
  1. TIVDAK [Suspect]
     Active Substance: TISOTUMAB VEDOTIN-TFTV
     Indication: Cervix carcinoma
     Dosage: ONE CYCLE WITHIN THE LAST TWO WEEKS
     Route: 065

REACTIONS (3)
  - Vaginal haemorrhage [Unknown]
  - Pruritus [Unknown]
  - Epistaxis [Unknown]
